FAERS Safety Report 10811824 (Version 4)
Quarter: 2016Q1

REPORT INFORMATION
  Report Type: Report from Study
  Country: IT (occurrence: IT)
  Receive Date: 20150217
  Receipt Date: 20160129
  Transmission Date: 20160525
  Serious: Yes (Other)
  Sender: FDA-Public Use
  Company Number: IT-ROCHE-1539160

PATIENT
  Age: 68 Year
  Sex: Female
  Weight: 70 kg

DRUGS (5)
  1. PEG-INTERFERON ALFA 2A [Suspect]
     Active Substance: PEGINTERFERON ALFA-2A
     Indication: CHRONIC HEPATITIS C
     Route: 058
     Dates: start: 20131015, end: 20131031
  2. RIBAVIRIN. [Interacting]
     Active Substance: RIBAVIRIN
     Indication: CHRONIC HEPATITIS C
     Route: 048
     Dates: start: 20131015, end: 20131031
  3. TELAPREVIR [Interacting]
     Active Substance: TELAPREVIR
     Indication: CHRONIC HEPATITIS C
     Route: 048
     Dates: start: 20131015, end: 20131115
  4. PEG-INTERFERON ALFA 2A [Interacting]
     Active Substance: PEGINTERFERON ALFA-2A
     Route: 058
     Dates: start: 20131031, end: 20131115
  5. RIBAVIRIN. [Interacting]
     Active Substance: RIBAVIRIN
     Route: 048
     Dates: start: 20131031, end: 20131115

REACTIONS (5)
  - Anaemia [Recovered/Resolved]
  - Leukopenia [Recovered/Resolved]
  - Neutropenia [Recovered/Resolved]
  - Thrombocytopenia [Recovered/Resolved]
  - Drug interaction [Unknown]

NARRATIVE: CASE EVENT DATE: 20131031
